FAERS Safety Report 4474446-X (Version None)
Quarter: 2004Q4

REPORT INFORMATION
  Report Type: 
  Country: None (occurrence: None)
  Receive Date: 20041012
  Receipt Date: 20040924
  Transmission Date: 20050328
  Serious: Yes (Other)
  Sender: FDA-Public Use
  Company Number: 2004-DE-05125GL

PATIENT
  Age: 69 Year
  Sex: Male

DRUGS (2)
  1. TELMISARTAN (TELMISARTAN) [Suspect]
     Indication: HYPERTENSION
     Dosage: PO
     Route: 048
     Dates: start: 20040809
  2. LATANOPROST [Suspect]
     Indication: GLAUCOMA
     Dosage: PO
     Route: 048

REACTIONS (2)
  - DRUG INTERACTION [None]
  - INTRAOCULAR PRESSURE INCREASED [None]
